FAERS Safety Report 9245037 (Version 2)
Quarter: 2014Q3

REPORT INFORMATION
  Report Type: Spontaneous
  Country: US (occurrence: US)
  Receive Date: 20130422
  Receipt Date: 20140903
  Transmission Date: 20150326
  Serious: Yes (Other)
  Sender: FDA-Public Use
  Company Number: PHEH2013US008597

PATIENT
  Sex: Female

DRUGS (3)
  1. BENICAR [Suspect]
     Active Substance: OLMESARTAN MEDOXOMIL
     Dosage: UNK UKN, UNK
  2. TEKTURNA [Suspect]
     Active Substance: ALISKIREN HEMIFUMARATE
     Dosage: UNK UKN, UNK
  3. VALTURNA [Suspect]
     Active Substance: ALISKIREN HEMIFUMARATE\VALSARTAN
     Dosage: UNK UKN, UNK
     Dates: start: 2010

REACTIONS (10)
  - Renal failure chronic [Unknown]
  - Hypercalcaemia [Unknown]
  - Brain natriuretic peptide increased [Unknown]
  - Injury [Unknown]
  - Cerebrovascular accident [Unknown]
  - Hypertension [Unknown]
  - Anxiety [Unknown]
  - Anhedonia [Unknown]
  - Ejection fraction abnormal [Unknown]
  - Pain [Unknown]

NARRATIVE: CASE EVENT DATE: 2011
